FAERS Safety Report 14381119 (Version 1)
Quarter: 2018Q1

REPORT INFORMATION
  Report Type: Spontaneous
  Country: US (occurrence: US)
  Receive Date: 20180112
  Receipt Date: 20180112
  Transmission Date: 20180509
  Serious: Yes (Hospitalization, Other)
  Sender: FDA-Public Use
  Company Number: US-DSJP-DSU-2017-139973

PATIENT

DRUGS (1)
  1. BENICAR [Suspect]
     Active Substance: OLMESARTAN MEDOXOMIL
     Indication: HYPERTENSION
     Dosage: 20 MG, UNK
     Dates: start: 20110910, end: 20150702

REACTIONS (7)
  - Clostridium difficile colitis [Unknown]
  - Hypotension [Unknown]
  - Cholelithiasis [Unknown]
  - Colitis [Unknown]
  - Sprue-like enteropathy [Recovering/Resolving]
  - Inflammatory bowel disease [Unknown]
  - Haemorrhoids [Unknown]

NARRATIVE: CASE EVENT DATE: 20130106
